FAERS Safety Report 6029367-8 (Version None)
Quarter: 2009Q1

REPORT INFORMATION
  Report Type: 
  Country: None (occurrence: None)
  Receive Date: 20090105
  Receipt Date: 20081215
  Transmission Date: 20090719
  Serious: Yes (Other)
  Sender: FDA-Public Use
  Company Number: 1-17112393

PATIENT
  Age: 22 Year
  Sex: Female

DRUGS (1)
  1. METHIMAZOLE [Suspect]
     Indication: BASEDOW'S DISEASE
     Dosage: 30 MG PER DAY, ORAL
     Route: 048

REACTIONS (5)
  - ACTIVATED PARTIAL THROMBOPLASTIN TIME PROLONGED [None]
  - ANTIPHOSPHOLIPID ANTIBODIES POSITIVE [None]
  - BLOOD FIBRINOGEN INCREASED [None]
  - BLOOD IMMUNOGLOBULIN M INCREASED [None]
  - VASCULITIS CEREBRAL [None]
